FAERS Safety Report 8192723-6 (Version None)
Quarter: 2012Q1

REPORT INFORMATION
  Report Type: 
  Country: None (occurrence: None)
  Receive Date: 20120308
  Receipt Date: 20120304
  Transmission Date: 20120608
  Serious: No
  Sender: FDA-Public Use
  Company Number: US-PFIZER INC-2012058163

PATIENT
  Sex: Male
  Weight: 95.238 kg

DRUGS (3)
  1. VIAGRA [Suspect]
     Indication: ERECTILE DYSFUNCTION
     Dosage: 250 MG, UNK
     Route: 048
  2. CANNABIS [Concomitant]
     Indication: ARTHROPATHY
     Dosage: 2 G, EVERY TWO DAYS
  3. METHYLENEDIOXYMETHAMPHETAMINE [Suspect]
     Indication: BACK PAIN

REACTIONS (1)
  - GENITAL SWELLING [None]
